FAERS Safety Report 16474008 (Version 1)
Quarter: 2019Q2

REPORT INFORMATION
  Report Type: Spontaneous
  Country: US (occurrence: US)
  Receive Date: 20190625
  Receipt Date: 20190625
  Transmission Date: 20190711
  Serious: No
  Sender: FDA-Public Use
  Company Number: US-JNJFOC-20190619662

PATIENT
  Age: 63 Year
  Sex: Male
  Weight: 104.42 kg

DRUGS (4)
  1. DURAGESIC [Suspect]
     Active Substance: FENTANYL
     Indication: ARTHRITIS
  2. DURAGESIC [Suspect]
     Active Substance: FENTANYL
     Indication: FEMUR FRACTURE
  3. DURAGESIC [Suspect]
     Active Substance: FENTANYL
     Indication: BACK PAIN
     Dosage: STRENGTH- 75 MCG/HR
     Route: 062
     Dates: start: 2017
  4. DURAGESIC [Suspect]
     Active Substance: FENTANYL
     Indication: NECK PAIN

REACTIONS (2)
  - Therapeutic response decreased [Unknown]
  - Product complaint [Unknown]

NARRATIVE: CASE EVENT DATE: 201904
